FAERS Safety Report 4864898-5 (Version None)
Quarter: 2005Q4

REPORT INFORMATION
  Report Type: 
  Country: None (occurrence: None)
  Receive Date: 20051201
  Receipt Date: 20050812
  Transmission Date: 20060501
  Serious: No
  Sender: FDA-Public Use
  Company Number: 2005PV001128

PATIENT
  Age: 50 Year
  Sex: Male
  Weight: 106.1417 kg

DRUGS (7)
  1. BYETTA [Suspect]
     Indication: DIABETES MELLITUS NON-INSULIN-DEPENDENT
     Dosage: 5 MCG; BID; SC
     Route: 058
     Dates: start: 20050721, end: 20050811
  2. GLUCOPHAGE [Concomitant]
  3. GLIPIZIDE [Concomitant]
  4. DIOVAN [Concomitant]
  5. PRANDIN [Concomitant]
  6. AMARYL [Concomitant]
  7. OLIVE LEAF [Concomitant]

REACTIONS (5)
  - BACK PAIN [None]
  - BURNING SENSATION [None]
  - DRUG EFFECT DECREASED [None]
  - DRUG INEFFECTIVE [None]
  - MUSCULOSKELETAL DISCOMFORT [None]
